FAERS Safety Report 4823916-0 (Version None)
Quarter: 2005Q4

REPORT INFORMATION
  Report Type: 
  Country: None (occurrence: None)
  Receive Date: 20051109
  Receipt Date: 20051103
  Transmission Date: 20060501
  Serious: Yes (Hospitalization)
  Sender: FDA-Public Use
  Company Number: DK-AVENTIS-200519687GDDC

PATIENT
  Age: 75 Year
  Sex: Male

DRUGS (2)
  1. DESMOPRESSIN ACETATE [Suspect]
     Indication: ENURESIS
     Route: 048
  2. DESMOPRESSIN ACETATE [Suspect]

REACTIONS (3)
  - ACCIDENTAL OVERDOSE [None]
  - COLONIC PSEUDO-OBSTRUCTION [None]
  - HYPONATRAEMIA [None]
